FAERS Safety Report 8943810 (Version 2)
Quarter: 2012Q4

REPORT INFORMATION
  Report Type: 
  Country: JP (occurrence: JP)
  Receive Date: 20121204
  Receipt Date: 20121217
  Transmission Date: 20130627
  Serious: Yes (Life-Threatening, Other)
  Sender: FDA-Public Use
  Company Number: JP-BRISTOL-MYERS SQUIBB COMPANY-17125808

PATIENT
  Age: 42 Year
  Sex: Male
  Weight: 60 kg

DRUGS (8)
  1. ABILIFY TABS [Suspect]
     Indication: ANXIETY DISORDER
     Dosage: 31My12-22Jun12 23dys 6mg
     Route: 048
     Dates: start: 20120531
  2. ABILIFY TABS [Suspect]
     Indication: DEPRESSION
     Dosage: 31My12-22Jun12 23dys 6mg
     Route: 048
     Dates: start: 20120531
  3. ZYPREXA [Suspect]
     Route: 048
     Dates: start: 20120512, end: 20120531
  4. RABEPRAZOLE SODIUM [Concomitant]
     Dosage: tabs
     Dates: start: 20120620, end: 20120622
  5. GASMOTIN [Concomitant]
     Dosage: tabs
     Dates: start: 20120620, end: 20120622
  6. CERCINE [Concomitant]
     Dosage: tabs
  7. FLUNITRAZEPAM [Concomitant]
     Dosage: tabs
  8. BROTIZOLAM [Concomitant]

REACTIONS (6)
  - Diabetic ketoacidosis [Recovered/Resolved]
  - Diabetes mellitus [Recovering/Resolving]
  - White blood cell count increased [Unknown]
  - Renal impairment [Unknown]
  - C-reactive protein increased [Unknown]
  - Protein urine present [Unknown]
